FAERS Safety Report 8582051-9 (Version None)
Quarter: 2012Q3

REPORT INFORMATION
  Report Type: 
  Country: None (occurrence: None)
  Receive Date: 20120809
  Receipt Date: 20120806
  Transmission Date: 20120928
  Serious: Yes (Other)
  Sender: FDA-Public Use
  Company Number: US-PFIZER INC-2011211988

PATIENT
  Sex: Female

DRUGS (6)
  1. PREDNISONE TAB [Suspect]
     Dosage: 17.5MG, UNK
     Dates: end: 20110701
  2. PREDNISONE TAB [Suspect]
     Dosage: 12.5 MG DAILY
     Dates: start: 20110901
  3. PREDNISONE TAB [Suspect]
     Dosage: 15 MG DAILY
     Dates: start: 20110701
  4. LIPITOR [Suspect]
     Dosage: 10 MG, 1X/DAY
     Dates: start: 20051001, end: 20070901
  5. LIPITOR [Suspect]
     Dosage: 10 MG, UNK
     Dates: start: 20100101, end: 20101101
  6. PREDNISONE TAB [Suspect]
     Dosage: 20MG, UNK

REACTIONS (10)
  - MYALGIA [None]
  - BLOOD CREATINE PHOSPHOKINASE INCREASED [None]
  - MUSCULAR WEAKNESS [None]
  - ALOPECIA [None]
  - LIVER DISORDER [None]
  - GAIT DISTURBANCE [None]
  - ACTIVITIES OF DAILY LIVING IMPAIRED [None]
  - OSTEOPENIA [None]
  - VITAMIN D DECREASED [None]
  - POLYMYOSITIS [None]
